FAERS Safety Report 8466471 (Version 2)
Quarter: 2013Q1

REPORT INFORMATION
  Report Type: Spontaneous
  Country: IT (occurrence: IT)
  Receive Date: 20120319
  Receipt Date: 20130129
  Transmission Date: 20140127
  Serious: Yes (Hospitalization)
  Sender: FDA-Public Use
  Company Number: IT-ROCHE-1048840

PATIENT
  Age: 49 Year
  Sex: Male

DRUGS (2)
  1. PEGASYS [Suspect]
     Indication: CHRONIC HEPATITIS C
     Route: 030
     Dates: start: 20111120, end: 20120207
  2. COPEGUS [Concomitant]
     Indication: HEPATITIS C
     Route: 048
     Dates: start: 20111120

REACTIONS (5)
  - Hypokinesia [Recovering/Resolving]
  - Peripheral sensory neuropathy [Recovering/Resolving]
  - Polyneuropathy [Recovering/Resolving]
  - Pyrexia [Recovering/Resolving]
  - Raynaud^s phenomenon [Recovering/Resolving]
